FAERS Safety Report 8201354 (Version 4)
Quarter: 2012Q4

REPORT INFORMATION
  Report Type: 
  Country: CA (occurrence: CA)
  Receive Date: 20111026
  Receipt Date: 20121111
  Transmission Date: 20130627
  Serious: Yes (Hospitalization)
  Sender: FDA-Public Use
  Company Number: PHHY2011CA92799

PATIENT
  Sex: Female

DRUGS (1)
  1. ACLASTA [Suspect]
     Indication: OSTEOPOROSIS
     Route: 042
     Dates: start: 20101102

REACTIONS (4)
  - Fall [Unknown]
  - Asthenia [Unknown]
  - Arthralgia [Unknown]
  - Gait disturbance [Unknown]
